FAERS Safety Report 25477154 (Version 1)
Quarter: 2025Q2

REPORT INFORMATION
  Report Type: Spontaneous
  Country: CN (occurrence: CN)
  Receive Date: 20250625
  Receipt Date: 20250625
  Transmission Date: 20250717
  Serious: Yes (Other)
  Sender: ROCHE
  Company Number: CN-BoehringerIngelheim-2025-BI-077625

PATIENT
  Age: 65 Year
  Sex: Female
  Weight: 40 kg

DRUGS (2)
  1. ALTEPLASE [Suspect]
     Active Substance: ALTEPLASE
     Indication: Ischaemic stroke
     Route: 042
     Dates: start: 20230603, end: 20250603
  2. ALTEPLASE [Suspect]
     Active Substance: ALTEPLASE
     Route: 042
     Dates: start: 20230603, end: 20250603

REACTIONS (2)
  - Cerebral infarction [Recovered/Resolved]
  - Neurological decompensation [Recovered/Resolved]

NARRATIVE: CASE EVENT DATE: 20250604
